FAERS Safety Report 4935442-9 (Version None)
Quarter: 2006Q1

REPORT INFORMATION
  Report Type: 
  Country: None (occurrence: None)
  Receive Date: 20060307
  Receipt Date: 20050810
  Transmission Date: 20060701
  Serious: No
  Sender: FDA-Public Use
  Company Number: US-GLAXOSMITHKLINE-A0569713A

PATIENT
  Age: 73 Year
  Sex: Female

DRUGS (8)
  1. REQUIP [Suspect]
     Indication: PARKINSON'S DISEASE
     Dosage: 3MG THREE TIMES PER DAY
     Route: 048
     Dates: start: 20041001
  2. CELEXA [Concomitant]
  3. LISINOPRIL [Concomitant]
  4. PRAVACHOL [Concomitant]
  5. MULTI-VITAMIN [Concomitant]
  6. VIT C [Concomitant]
  7. GLUCOSAMINE [Concomitant]
  8. CALTRATE [Concomitant]

REACTIONS (2)
  - DIPLOPIA [None]
  - VISION BLURRED [None]
